FAERS Safety Report 16803466 (Version 1)
Quarter: 2019Q3

REPORT INFORMATION
  Report Type: Spontaneous
  Country: NL (occurrence: NL)
  Receive Date: 20190913
  Receipt Date: 20190913
  Transmission Date: 20191005
  Serious: Yes (Death, Hospitalization, Other)
  Sender: FDA-Public Use
  Company Number: NL-TEVA-2019-NL-1106456

PATIENT
  Sex: Male

DRUGS (24)
  1. PARACETAMOL [Concomitant]
     Active Substance: ACETAMINOPHEN
     Route: 065
  2. METOPROLOL. [Concomitant]
     Active Substance: METOPROLOL
     Route: 065
  3. DURVALUMAB. [Suspect]
     Active Substance: DURVALUMAB
     Indication: NON-SMALL CELL LUNG CANCER
     Dosage: 10 MG/KG
     Route: 042
     Dates: start: 20190711, end: 20190711
  4. SUCRALFAAT [Concomitant]
     Dosage: SUSPENSION
     Route: 065
  5. PROMETHAZINE [Concomitant]
     Active Substance: PROMETHAZINE HYDROCHLORIDE
     Route: 065
  6. PREDNISOLON [Concomitant]
     Active Substance: PREDNISOLONE
     Route: 065
  7. ZOPLICONE [Concomitant]
     Active Substance: ZOPICLONE
     Route: 065
  8. METFORMINE [Concomitant]
     Active Substance: METFORMIN HYDROCHLORIDE
     Route: 065
  9. COTRIMOXAZOL [Concomitant]
     Active Substance: SULFAMETHOXAZOLE\TRIMETHOPRIM
     Route: 065
  10. BUDESONIDE. [Concomitant]
     Active Substance: BUDESONIDE
     Route: 065
  11. HALOPERIDOL. [Concomitant]
     Active Substance: HALOPERIDOL
     Route: 065
  12. LORAZEPAM. [Concomitant]
     Active Substance: LORAZEPAM
     Route: 065
  13. PANTOPRAZOL [Concomitant]
     Active Substance: PANTOPRAZOLE SODIUM
     Route: 065
  14. RANITIDINE. [Concomitant]
     Active Substance: RANITIDINE
     Route: 065
  15. MAGNESIUMHYDROXIDE [Concomitant]
     Dosage: SUSPENSION
     Route: 065
  16. EZETIMIBE. [Concomitant]
     Active Substance: EZETIMIBE
     Route: 065
  17. IPRATROPIUM, SALBUTAMOL (NGX) INHALER [Suspect]
     Active Substance: ALBUTEROL\IPRATROPIUM
     Indication: PRODUCT USED FOR UNKNOWN INDICATION
     Dosage: 2 MG/ML, (6 X PER DAY 2.5 ML)
     Route: 055
  18. GABAPENTINE [Concomitant]
     Active Substance: GABAPENTIN
     Route: 065
  19. COLECALCIFEROL [Concomitant]
     Active Substance: CHOLECALCIFEROL
     Route: 065
  20. DALTEPARIN [Concomitant]
     Active Substance: DALTEPARIN
     Route: 065
  21. FENTANYL. [Concomitant]
     Active Substance: FENTANYL
     Route: 065
  22. MACROGOL [Concomitant]
     Active Substance: POLYETHYLENE GLYCOLS
     Route: 065
  23. NOVORAPID [Concomitant]
     Active Substance: INSULIN ASPART
     Route: 065
  24. NITROGLYCERINE [Concomitant]
     Active Substance: NITROGLYCERIN
     Route: 065

REACTIONS (4)
  - Acute coronary syndrome [Unknown]
  - Death [Fatal]
  - Pneumonitis [Fatal]
  - Delirium [Unknown]

NARRATIVE: CASE EVENT DATE: 20190722
